FAERS Safety Report 7954185-0 (Version None)
Quarter: 2011Q4

REPORT INFORMATION
  Report Type: 
  Country: None (occurrence: None)
  Receive Date: 20111129
  Receipt Date: 20111111
  Transmission Date: 20120403
  Serious: Yes (Other)
  Sender: FDA-Public Use
  Company Number: JPI-P-017971

PATIENT
  Age: 55 Year
  Sex: Female
  Weight: 83.9154 kg

DRUGS (21)
  1. PENTOSAN POLYSULFATE SODIUM [Concomitant]
  2. PANTOPRAZOLE [Concomitant]
  3. BUTALBITAL ACETAMINOPHEN AND CAFFEINE [Concomitant]
  4. PHENAZOPYRIDINE HCL TAB [Concomitant]
  5. MAGNESIUM SULFATE [Concomitant]
  6. VITAMIN B-12 [Concomitant]
  7. CHLORDIAZEPOXIDE [Concomitant]
  8. AMPHETAMINE, DEXTROAMPHETAMINE MIXED SALTS [Concomitant]
  9. XYREM [Suspect]
     Indication: INITIAL INSOMNIA
     Dosage: UNKNOWN, ORAL; (3 GM FIRST DOSE/1.5GM SECOND DOSE), ORAL
     Route: 048
     Dates: start: 20110101
  10. XYREM [Suspect]
     Indication: INITIAL INSOMNIA
     Dosage: UNKNOWN, ORAL; (3 GM FIRST DOSE/1.5GM SECOND DOSE), ORAL
     Route: 048
     Dates: start: 20110413, end: 20110101
  11. LAMOTRIGINE [Concomitant]
  12. MELATONIN [Concomitant]
  13. BUSPIRONE [Concomitant]
  14. TOLTERODINE TARTRATE [Concomitant]
  15. NEFAZODONE HCL [Concomitant]
  16. NAPROXEN [Concomitant]
  17. SIMVASTATIN [Concomitant]
  18. CLOPIDOGREL BISULFATE [Concomitant]
  19. METAXALONE [Concomitant]
  20. ZIPRASIDONE HYDROCHLORIDE [Concomitant]
  21. TEMAZEPAM [Concomitant]

REACTIONS (5)
  - SPINAL OSTEOARTHRITIS [None]
  - BACK PAIN [None]
  - NECK PAIN [None]
  - GAIT DISTURBANCE [None]
  - SPINAL COLUMN STENOSIS [None]
